FAERS Safety Report 5898570-X (Version None)
Quarter: 2008Q3

REPORT INFORMATION
  Report Type: 
  Country: None (occurrence: None)
  Receive Date: 20080925
  Receipt Date: 20080201
  Transmission Date: 20090109
  Serious: No
  Sender: FDA-Public Use
  Company Number: A0706905A

PATIENT
  Age: 57 Year
  Sex: Female

DRUGS (12)
  1. WELLBUTRIN XL [Suspect]
     Indication: DEPRESSION
     Dosage: 300MG TWICE PER DAY
     Route: 048
     Dates: start: 20070601
  2. NEURONTIN [Concomitant]
  3. COLCHICINE [Concomitant]
  4. FOLIC ACID [Concomitant]
  5. MECLIZINE [Concomitant]
  6. TOPAMAX [Concomitant]
  7. CALCITRIOL [Concomitant]
  8. LEVOTHYROXINE SODIUM [Concomitant]
  9. ATENOLOL [Concomitant]
  10. AMOXICILLIN [Concomitant]
  11. DARVOCET [Concomitant]
  12. CYCLOSPORINE [Concomitant]

REACTIONS (1)
  - OVERDOSE [None]
